FAERS Safety Report 19357198 (Version 2)
Quarter: 2022Q2

REPORT INFORMATION
  Report Type: Spontaneous
  Country: NL (occurrence: NL)
  Receive Date: 20210602
  Receipt Date: 20220618
  Transmission Date: 20220720
  Serious: Yes (Hospitalization, Other)
  Sender: FDA-Public Use
  Company Number: NL-ABBVIE-21K-114-3888337-00

PATIENT
  Age: 56 Year
  Sex: Male

DRUGS (7)
  1. QUETIAPINE [Suspect]
     Active Substance: QUETIAPINE
     Indication: Product used for unknown indication
     Dosage: UNK
     Route: 065
  2. CARBIDOPA\LEVODOPA [Suspect]
     Active Substance: CARBIDOPA\LEVODOPA
     Indication: Parkinson^s disease
     Dosage: UNK (MD 3.0 ML CD 3.6 ML/H ED 2.0 ML)
     Route: 050
  3. CARBIDOPA\LEVODOPA [Suspect]
     Active Substance: CARBIDOPA\LEVODOPA
     Indication: Product used for unknown indication
     Dosage: UNK (MD: 3.0 ML, CD: 3.8 ML/H, ED: 2.0 ML)
     Route: 065
  4. CARBIDOPA\LEVODOPA [Suspect]
     Active Substance: CARBIDOPA\LEVODOPA
     Dosage: UNK (MD: 4.0 ML, CD: 3.9 ML/H, ED: 2.0 ML)
     Route: 050
  5. CARBIDOPA\LEVODOPA [Suspect]
     Active Substance: CARBIDOPA\LEVODOPA
     Dosage: UNK (MD: 3.0 ML, CD: 3.8ML/H, ED:2.0ML)
     Route: 050
  6. CARBIDOPA\LEVODOPA [Suspect]
     Active Substance: CARBIDOPA\LEVODOPA
     Dosage: UNK (MD: 4.0 ML, CD: 3.6 ML/H, ED: 2.0 ML)
     Route: 050
  7. CARBIDOPA\LEVODOPA [Suspect]
     Active Substance: CARBIDOPA\LEVODOPA
     Dosage: UNK
     Route: 050
     Dates: start: 20190325

REACTIONS (18)
  - Dyskinesia [Not Recovered/Not Resolved]
  - Emotional disorder [Not Recovered/Not Resolved]
  - Dysstasia [Not Recovered/Not Resolved]
  - Abnormal faeces [Not Recovered/Not Resolved]
  - Posture abnormal [Not Recovered/Not Resolved]
  - Mania [Not Recovered/Not Resolved]
  - Musculoskeletal disorder [Not Recovered/Not Resolved]
  - Device issue [Recovered/Resolved]
  - Muscle rigidity [Not Recovered/Not Resolved]
  - Dystonia [Not Recovered/Not Resolved]
  - Muscular weakness [Recovered/Resolved]
  - Depressed mood [Not Recovered/Not Resolved]
  - Hospitalisation [Recovered/Resolved]
  - Unevaluable event [Recovered/Resolved]
  - Fall [Recovered/Resolved]
  - Overdose [Not Recovered/Not Resolved]
  - Mobility decreased [Not Recovered/Not Resolved]
  - Extra dose administered [Recovered/Resolved]

NARRATIVE: CASE EVENT DATE: 20210101
